FAERS Safety Report 7987478-1 (Version None)
Quarter: 2011Q4

REPORT INFORMATION
  Report Type: 
  Country: None (occurrence: None)
  Receive Date: 20111216
  Receipt Date: 20111208
  Transmission Date: 20120403
  Serious: Yes (Hospitalization, Other)
  Sender: FDA-Public Use
  Company Number: PHEH2011US011263

PATIENT
  Sex: Female

DRUGS (1)
  1. NEORAL [Suspect]
     Indication: RENAL TRANSPLANT
     Dosage: 0.75 ML, BID
     Route: 048
     Dates: start: 20051201

REACTIONS (5)
  - VOMITING [None]
  - SMALL INTESTINAL OBSTRUCTION [None]
  - APHAGIA [None]
  - OESOPHAGEAL DISORDER [None]
  - WEIGHT DECREASED [None]
